FAERS Safety Report 7769640-6 (Version None)
Quarter: 2011Q3

REPORT INFORMATION
  Report Type: 
  Country: None (occurrence: None)
  Receive Date: 20110922
  Receipt Date: 20110519
  Transmission Date: 20111222
  Serious: No
  Sender: FDA-Public Use
  Company Number: US-ASTRAZENECA-2011SE13552

PATIENT
  Age: 51 Year
  Sex: Female
  Weight: 80.7 kg

DRUGS (4)
  1. LISINOPRIL [Concomitant]
  2. SEROQUEL XR [Suspect]
     Indication: BIPOLAR DISORDER
     Route: 048
     Dates: start: 20100101
  3. PROZAC [Concomitant]
  4. MULTI-VITAMIN [Concomitant]

REACTIONS (6)
  - WEIGHT INCREASED [None]
  - HOT FLUSH [None]
  - OROPHARYNGEAL PAIN [None]
  - EAR INFECTION [None]
  - WHEEZING [None]
  - WEIGHT DECREASED [None]
